FAERS Safety Report 20828397 (Version 5)
Quarter: 2022Q3

REPORT INFORMATION
  Report Type: Spontaneous
  Country: US (occurrence: US)
  Receive Date: 20220513
  Receipt Date: 20220920
  Transmission Date: 20221026
  Serious: No
  Sender: FDA-Public Use
  Company Number: US-PFIZER INC-202200645088

PATIENT
  Age: 50 Year
  Sex: Female

DRUGS (1)
  1. IBRANCE [Suspect]
     Active Substance: PALBOCICLIB
     Dosage: 125 MG

REACTIONS (9)
  - White blood cell count abnormal [Unknown]
  - Hot flush [Unknown]
  - Night sweats [Unknown]
  - Nausea [Unknown]
  - Fatigue [Unknown]
  - Myalgia [Unknown]
  - Pain in extremity [Unknown]
  - Pain [Unknown]
  - Neoplasm progression [Unknown]

NARRATIVE: CASE EVENT DATE: 20220401
